FAERS Safety Report 4941405-X (Version None)
Quarter: 2006Q1

REPORT INFORMATION
  Report Type: 
  Country: None (occurrence: None)
  Receive Date: 20060313
  Receipt Date: 20060228
  Transmission Date: 20060701
  Serious: Yes (Death, Hospitalization, Other)
  Sender: FDA-Public Use
  Company Number: US-MERCK-0603USA00082

PATIENT
  Age: 83 Year
  Sex: Female
  Weight: 91 kg

DRUGS (9)
  1. TYLENOL (CAPLET) [Concomitant]
     Route: 048
  2. VIOXX [Suspect]
     Indication: ARTHRITIS
     Route: 048
     Dates: start: 20011205, end: 20030509
  3. ASPIRIN [Concomitant]
     Route: 048
  4. GLUCOPHAGE [Concomitant]
     Route: 048
  5. ATENOLOL [Concomitant]
     Route: 048
  6. ZOCOR [Concomitant]
     Route: 048
  7. OS-CAL [Concomitant]
     Route: 065
  8. MONOPRIL [Concomitant]
     Route: 048
  9. ZANTAC [Concomitant]
     Route: 048

REACTIONS (15)
  - AGITATION [None]
  - CARDIAC ARREST [None]
  - CAROTID ARTERY STENOSIS [None]
  - CEREBROVASCULAR ACCIDENT [None]
  - DEHYDRATION [None]
  - DEPRESSION [None]
  - DERMATITIS CONTACT [None]
  - HEAD INJURY [None]
  - HYPERTHYROIDISM [None]
  - HYPOGLYCAEMIA [None]
  - MYOCARDIAL INFARCTION [None]
  - PETECHIAE [None]
  - RESPIRATORY ARREST [None]
  - SICKLE CELL TRAIT [None]
  - URINARY TRACT INFECTION [None]
